FAERS Safety Report 17825556 (Version 1)
Quarter: 2020Q2

REPORT INFORMATION
  Report Type: Spontaneous
  Country: RS (occurrence: RS)
  Receive Date: 20200526
  Receipt Date: 20200526
  Transmission Date: 20200714
  Serious: Yes (Hospitalization)
  Sender: FDA-Public Use
  Company Number: RS-JNJFOC-20200518714

PATIENT
  Age: 64 Year
  Sex: Male

DRUGS (8)
  1. RIVAROXABAN [Suspect]
     Active Substance: RIVAROXABAN
     Indication: ATRIAL FIBRILLATION
     Dosage: UNK
     Route: 048
  2. PERINDOPRIL [Concomitant]
     Active Substance: PERINDOPRIL
  3. AMIODARON [AMIODARONE] [Concomitant]
     Active Substance: AMIODARONE
  4. LEVOTIROXINA [LEVOTHYROXINE] [Concomitant]
     Indication: HYPOTHYROIDISM
  5. LOW MOLECULAR WEIGHT HEPARIN [Concomitant]
     Active Substance: UNSPECIFIED INGREDIENT
     Dosage: UNK
  6. INDAPAMID [Concomitant]
     Active Substance: INDAPAMIDE
  7. BISOPROLOL [Concomitant]
     Active Substance: BISOPROLOL
     Dosage: UNK
  8. PROPAFENON [PROPAFENONE] [Concomitant]
     Active Substance: PROPAFENONE
     Dosage: UNK

REACTIONS (2)
  - Tumour haemorrhage [Recovered/Resolved]
  - Hepatocellular carcinoma [Unknown]
